FAERS Safety Report 8109419-9 (Version None)
Quarter: 2012Q1

REPORT INFORMATION
  Report Type: 
  Country: None (occurrence: None)
  Receive Date: 20120202
  Receipt Date: 20120110
  Transmission Date: 20120608
  Serious: No
  Sender: FDA-Public Use
  Company Number: US-AMGEN-USASP2012001756

PATIENT
  Age: 58 Year
  Sex: Male

DRUGS (1)
  1. ENBREL [Suspect]
     Indication: RHEUMATOID ARTHRITIS
     Dosage: 50 MG, 2 TIMES/WK
     Dates: start: 20111220

REACTIONS (5)
  - FATIGUE [None]
  - SKIN DISCOLOURATION [None]
  - INJECTION SITE ERYTHEMA [None]
  - PRURITUS [None]
  - SKIN PLAQUE [None]
